FAERS Safety Report 8876620 (Version 1)
Quarter: 2012Q4

REPORT INFORMATION
  Report Type: 
  Country: US (occurrence: US)
  Receive Date: 20121023
  Receipt Date: 20121023
  Transmission Date: 20130627
  Serious: Yes (Other)
  Sender: FDA-Public Use
  Company Number: US-ROCHE-1130077

PATIENT
  Age: 42 Year
  Sex: Female

DRUGS (2)
  1. HERCEPTIN [Suspect]
     Indication: BREAST CANCER METASTATIC
     Route: 065
     Dates: start: 1997
  2. XELODA [Suspect]
     Indication: PRODUCT USED FOR UNKNOWN INDICATION
     Route: 065
     Dates: start: 19980602

REACTIONS (13)
  - Stomatitis [Unknown]
  - Skin lesion [Unknown]
  - Abdominal distension [Unknown]
  - Musculoskeletal chest pain [Unknown]
  - Axillary pain [Unknown]
  - Toxicity to various agents [Unknown]
  - Stomatitis [Unknown]
  - Diarrhoea [Unknown]
  - Palmar-plantar erythrodysaesthesia syndrome [Unknown]
  - Malaise [Unknown]
  - Erythema [Unknown]
  - Weight increased [Unknown]
  - Fatigue [Unknown]
